FAERS Safety Report 21996977 (Version 2)
Quarter: 2023Q1

REPORT INFORMATION
  Report Type: Report from Study
  Country: KR (occurrence: KR)
  Receive Date: 20230215
  Receipt Date: 20230223
  Transmission Date: 20230417
  Serious: Yes (Death, Hospitalization)
  Sender: FDA-Public Use
  Company Number: KR-CELLTRION INC.-2023KR002093

PATIENT

DRUGS (11)
  1. INVESTIGATIONAL BIOSIMILARS [Suspect]
     Active Substance: INVESTIGATIONAL BIOSIMILARS
     Indication: Chemotherapy
     Dosage: UNK
     Route: 042
     Dates: start: 20230124
  2. INVESTIGATIONAL BIOSIMILARS [Suspect]
     Active Substance: INVESTIGATIONAL BIOSIMILARS
     Dosage: UNK
     Route: 042
     Dates: start: 20221229, end: 20230119
  3. NERATINIB [Suspect]
     Active Substance: NERATINIB
     Indication: Chemotherapy
     Dosage: UNK
     Route: 048
     Dates: start: 20230124
  4. NERATINIB [Suspect]
     Active Substance: NERATINIB
     Dosage: UNK
     Route: 048
     Dates: start: 20221229, end: 20230119
  5. NORVASC [Concomitant]
     Active Substance: AMLODIPINE BESYLATE
     Indication: Hypertension
     Dosage: 5 MG, QD
     Route: 048
     Dates: start: 2017
  6. CARVEDILOL [Concomitant]
     Active Substance: CARVEDILOL
     Indication: Hypertension
     Dosage: 25 MG, QD
     Route: 048
     Dates: start: 2017
  7. ASPIRIN [Concomitant]
     Active Substance: ASPIRIN
     Indication: Thrombosis
     Dosage: 100 MG, QD
     Route: 048
     Dates: start: 20210107
  8. ZEMIGLO [Concomitant]
     Indication: Diabetes mellitus
     Dosage: 50 MG, QD
     Route: 048
     Dates: start: 2017
  9. NEURONTIN [Concomitant]
     Active Substance: GABAPENTIN
     Indication: Hypoaesthesia
     Dosage: 100 MG, TID
     Route: 048
     Dates: start: 20221122
  10. Feroba-you [Concomitant]
     Indication: Anaemia
     Dosage: 256 MG, BID
     Route: 048
     Dates: start: 20230101
  11. TASNA [Concomitant]
     Dosage: 500 MG, TID
     Route: 048
     Dates: start: 20221221

REACTIONS (4)
  - Disease progression [Fatal]
  - Asthenia [Fatal]
  - Pleural effusion [Fatal]
  - Diarrhoea [Unknown]

NARRATIVE: CASE EVENT DATE: 20230124
